FAERS Safety Report 8763015 (Version 2)
Quarter: 2013Q1

REPORT INFORMATION
  Report Type: Spontaneous
  Country: JP (occurrence: None)
  Receive Date: 20120812
  Receipt Date: 20121010
  Transmission Date: 20140127
  Serious: Yes (Disabling)
  Sender: FDA-Public Use
  Company Number: US-2012-11301

PATIENT
  Age: 19 Year
  Sex: Female

DRUGS (2)
  1. BUSULFEX [Suspect]
     Indication: NEOPLASM MALIGNANT
     Route: 048
     Dates: start: 199706
  2. MELPHALAN [Concomitant]

REACTIONS (2)
  - Dental caries [None]
  - Dental alveolar anomaly [None]
